FAERS Safety Report 9979989 (Version 1)
Quarter: 2014Q1

REPORT INFORMATION
  Report Type: Report from Study
  Country: US (occurrence: US)
  Receive Date: 20140306
  Receipt Date: 20140306
  Transmission Date: 20141002
  Serious: No
  Sender: FDA-Public Use
  Company Number: US-ABBVIE-13P-163-1172493-00

PATIENT
  Age: 34 Year
  Sex: Female

DRUGS (18)
  1. HUMIRA [Suspect]
     Indication: CROHN^S DISEASE
     Dates: start: 20131011, end: 20131011
  2. HUMIRA [Suspect]
     Dates: start: 20131025, end: 20131025
  3. HUMIRA [Suspect]
     Dates: start: 20131108
  4. VESICARE [Concomitant]
     Indication: CYSTITIS INTERSTITIAL
  5. PHENTERMINE [Concomitant]
     Indication: PRODUCT USED FOR UNKNOWN INDICATION
  6. OMEPRAZOLE [Concomitant]
     Indication: CROHN^S DISEASE
  7. PENTASA [Concomitant]
     Indication: CROHN^S DISEASE
  8. ELAVIL [Concomitant]
     Indication: CYSTITIS INTERSTITIAL
  9. MICROGESTIN [Concomitant]
     Indication: CONTRACEPTION
     Dosage: 1/20
  10. VITAMIN D [Concomitant]
     Indication: PRODUCT USED FOR UNKNOWN INDICATION
  11. VITAMIN B12 [Concomitant]
     Indication: PRODUCT USED FOR UNKNOWN INDICATION
  12. FOLIC ACID [Concomitant]
     Indication: PRODUCT USED FOR UNKNOWN INDICATION
  13. ZINC [Concomitant]
     Indication: PRODUCT USED FOR UNKNOWN INDICATION
  14. MAGNESIUM [Concomitant]
     Indication: PRODUCT USED FOR UNKNOWN INDICATION
  15. IRON [Concomitant]
     Indication: PRODUCT USED FOR UNKNOWN INDICATION
  16. PROBIOTICS [Concomitant]
     Indication: PROBIOTIC THERAPY
     Dosage: DAILY
  17. GABAPENTIN [Concomitant]
     Indication: PRODUCT USED FOR UNKNOWN INDICATION
     Dosage: INCREASED FROM 300MG THREE TIMES A DAY TO 400MG THREE TIMES A DAY
  18. UNKNOWN MEDICATION [Concomitant]
     Indication: PRODUCT USED FOR UNKNOWN INDICATION
     Dosage: TOPICAL CREAM- 3-4 TIMES A DAY

REACTIONS (3)
  - Fibromyalgia [Recovered/Resolved]
  - Fibromyalgia [Not Recovered/Not Resolved]
  - Arthralgia [Not Recovered/Not Resolved]
